FAERS Safety Report 5752393-0 (Version None)
Quarter: 2008Q2

REPORT INFORMATION
  Report Type: 
  Country: None (occurrence: None)
  Receive Date: 20080529
  Receipt Date: 20080527
  Transmission Date: 20081010
  Serious: Yes (Other)
  Sender: FDA-Public Use
  Company Number: A0729642A

PATIENT
  Age: 36 Year
  Sex: Female

DRUGS (3)
  1. IMITREX [Suspect]
     Indication: MIGRAINE
     Dosage: 25MG VARIABLE DOSE
     Route: 048
     Dates: start: 20070101, end: 20070101
  2. YAZ [Suspect]
     Indication: CONTRACEPTION
     Dates: start: 20070101, end: 20080101
  3. MUCINEX [Concomitant]

REACTIONS (1)
  - THROMBOSIS [None]
